FAERS Safety Report 16734810 (Version 1)
Quarter: 2019Q3

REPORT INFORMATION
  Report Type: Report from Study
  Country: ID (occurrence: ID)
  Receive Date: 20190823
  Receipt Date: 20190823
  Transmission Date: 20191005
  Serious: Yes (Other)
  Sender: FDA-Public Use
  Company Number: ID-BAYER-2018-171273

PATIENT
  Age: 72 Year
  Sex: Male

DRUGS (1)
  1. NEXAVAR [Suspect]
     Active Substance: SORAFENIB
     Indication: RENAL CELL CARCINOMA
     Dosage: 200 MG, BID
     Route: 048
     Dates: start: 20180821, end: 201904

REACTIONS (19)
  - Palmoplantar keratoderma [Recovering/Resolving]
  - Fatigue [Recovering/Resolving]
  - Heart rate increased [Recovered/Resolved]
  - Insomnia [None]
  - Blister [Recovering/Resolving]
  - Pruritus [None]
  - Mouth ulceration [Recovered/Resolved]
  - Generalised erythema [Recovering/Resolving]
  - Abdominal distension [Not Recovered/Not Resolved]
  - Off label use [None]
  - Headache [None]
  - Dermatitis acneiform [Recovering/Resolving]
  - Fatigue [None]
  - Abdominal pain [None]
  - Blood pressure increased [Recovered/Resolved]
  - Tinnitus [Recovered/Resolved]
  - Dysphonia [None]
  - Pain in extremity [None]
  - Diarrhoea [Recovered/Resolved]

NARRATIVE: CASE EVENT DATE: 2018
